FAERS Safety Report 10492040 (Version 1)
Quarter: 2014Q4

REPORT INFORMATION
  Report Type: Spontaneous
  Country: US (occurrence: US)
  Receive Date: 20141002
  Receipt Date: 20141002
  Transmission Date: 20150528
  Serious: No
  Sender: FDA-Public Use
  Company Number: US-GLAXOSMITHKLINE-A1064330A

PATIENT
  Age: 92 Year
  Sex: Male

DRUGS (7)
  1. COUMADIN [Concomitant]
     Active Substance: WARFARIN SODIUM
  2. GABAPENTIN. [Concomitant]
     Active Substance: GABAPENTIN
  3. ADVAIR HFA [Suspect]
     Active Substance: FLUTICASONE PROPIONATE\SALMETEROL XINAFOATE
     Indication: ASTHMA
     Dosage: 1PUFF TWICE PER DAY
     Route: 055
     Dates: start: 2009
  4. POTASSIUM [Concomitant]
     Active Substance: POTASSIUM
  5. LISINOPRIL. [Concomitant]
     Active Substance: LISINOPRIL
  6. TRAMADOL [Concomitant]
     Active Substance: TRAMADOL
  7. ZANAFLEX [Concomitant]
     Active Substance: TIZANIDINE HYDROCHLORIDE

REACTIONS (1)
  - Nasopharyngitis [Recovered/Resolved]

NARRATIVE: CASE EVENT DATE: 20140308
